FAERS Safety Report 10063598 (Version 3)
Quarter: 2024Q3

REPORT INFORMATION
  Report Type: Spontaneous
  Country: GB (occurrence: GB)
  Receive Date: 20140407
  Receipt Date: 20240725
  Transmission Date: 20241017
  Serious: Yes (Death, Other)
  Sender: BAXTER
  Company Number: GB-BAXTER-2014BAX016322

PATIENT
  Age: 64 Year
  Sex: Male
  Weight: 89 kg

DRUGS (10)
  1. SODIUM CHLORIDE [Suspect]
     Active Substance: SODIUM CHLORIDE
     Indication: Medication dilution
     Dosage: 250 ML (MILLILTRE), UNSPECIFIED FREQUENCY
     Route: 065
     Dates: start: 20140319
  2. WATER FOR INJECTION [Suspect]
     Active Substance: WATER
     Indication: Medication dilution
     Dosage: 33.6 ML, PRN
     Route: 065
     Dates: start: 20140319
  3. ACYCLOVIR [Suspect]
     Active Substance: ACYCLOVIR
     Indication: Antiviral prophylaxis
     Dosage: 800 MG (MILLIGRAM) (DOSAGE TEXT: 400 MILLIGRAM, BID)
     Route: 065
  4. BRENTUXIMAB [Suspect]
     Active Substance: BRENTUXIMAB
     Indication: Anaplastic large cell lymphoma T- and null-cell types
     Dosage: 160 MILLIGRAM, QD
     Route: 042
     Dates: start: 20140319, end: 20140319
  5. PENICILLIN G [Suspect]
     Active Substance: PENICILLIN G
     Indication: Cellulitis
     Dosage: UNK
     Route: 042
  6. FLUCLOXACILLIN [Suspect]
     Active Substance: FLUCLOXACILLIN
     Indication: Cellulitis
     Dosage: UNK
     Route: 042
  7. COTRIMOXAZOLE [Suspect]
     Active Substance: SULFAMETHOXAZOLE\TRIMETHOPRIM
     Indication: Prophylaxis
     Dosage: 1440 MG (MILLIGRAM) 1 WK (WEEK) (DOSAGE TEXT: 480 MILLIGRAM, 3/WEEK)
     Route: 048
  8. COTRIMOXAZOLE [Suspect]
     Active Substance: SULFAMETHOXAZOLE\TRIMETHOPRIM
     Indication: Antiviral prophylaxis
  9. ADCETRIS [Suspect]
     Active Substance: BRENTUXIMAB VEDOTIN
     Indication: Anaplastic large cell lymphoma T- and null-cell types
     Dosage: 160 MG (MILLIGRAM) QD 1 D (DAY)
     Route: 042
     Dates: start: 20140319, end: 20140319
  10. PREDNISOLONE [Concomitant]
     Active Substance: PREDNISOLONE
     Dosage: UNK
     Route: 065

REACTIONS (6)
  - Death [Fatal]
  - Cardiovascular disorder [Recovered/Resolved]
  - Infection [Unknown]
  - Cellulitis [Unknown]
  - Off label use [Unknown]
  - Product use issue [Unknown]

NARRATIVE: CASE EVENT DATE: 20140319
